FAERS Safety Report 5778686-9 (Version None)
Quarter: 2008Q2

REPORT INFORMATION
  Report Type: 
  Country: None (occurrence: None)
  Receive Date: 20080619
  Receipt Date: 20080616
  Transmission Date: 20081010
  Serious: Yes (Other)
  Sender: FDA-Public Use
  Company Number: B0525693A

PATIENT
  Age: 34 Year
  Sex: Male

DRUGS (1)
  1. HEPTODIN [Suspect]
     Dosage: 100MG PER DAY
     Route: 048
     Dates: start: 20070803, end: 20070828

REACTIONS (3)
  - BLOOD BILIRUBIN INCREASED [None]
  - ERECTILE DYSFUNCTION [None]
  - NAUSEA [None]
